FAERS Safety Report 11080748 (Version 2)
Quarter: 2015Q2

REPORT INFORMATION
  Report Type: Report from Study
  Country: NL (occurrence: NL)
  Receive Date: 20150501
  Receipt Date: 20150605
  Transmission Date: 20150821
  Serious: Yes (Life-Threatening, Hospitalization)
  Sender: FDA-Public Use
  Company Number: NL-ROCHE-1571033

PATIENT
  Age: 49 Year
  Sex: Female

DRUGS (7)
  1. EPIRUBICINE [Suspect]
     Active Substance: EPIRUBICIN
     Indication: HER-2 POSITIVE BREAST CANCER
     Dosage: MOST CURRENT TREATMENT : 08/APR/2015
     Route: 042
     Dates: start: 20150225
  2. PERTUZUMAB [Suspect]
     Active Substance: PERTUZUMAB
     Dosage: MAINTAINANCE DOSE. LAST DOSE ON 08/APR/2015
     Route: 042
     Dates: start: 20150408
  3. TRASTUZUMAB [Suspect]
     Active Substance: TRASTUZUMAB
     Indication: HER-2 POSITIVE BREAST CANCER
     Dosage: MOST CURRENT TREATMENT : 08/APR/2015
     Route: 042
     Dates: start: 20150225
  4. PERTUZUMAB [Suspect]
     Active Substance: PERTUZUMAB
     Indication: HER-2 POSITIVE BREAST CANCER
     Dosage: LOADING DOSE:MOST CURRENT TREATMENT : 08/APR/2015
     Route: 042
     Dates: start: 20150225
  5. FLUOROURACIL. [Suspect]
     Active Substance: FLUOROURACIL
     Indication: HER-2 POSITIVE BREAST CANCER
     Dosage: MOST CURRENT TREATMENT : 08/APR/2015
     Route: 042
     Dates: start: 20150225
  6. CYCLOPHOSPHAMID [Suspect]
     Active Substance: CYCLOPHOSPHAMIDE
     Indication: HER-2 POSITIVE BREAST CANCER
     Dosage: MOST CURRENT TREATMENT : 08/APR/2015
     Route: 042
     Dates: start: 20150225
  7. TRASTUZUMAB [Suspect]
     Active Substance: TRASTUZUMAB
     Dosage: MOST CURRENT TREATMENT : 08/APR/2015
     Route: 042
     Dates: start: 20150408

REACTIONS (1)
  - Pulmonary embolism [Recovered/Resolved]

NARRATIVE: CASE EVENT DATE: 20150428
